FAERS Safety Report 7676768-8 (Version None)
Quarter: 2011Q3

REPORT INFORMATION
  Report Type: 
  Country: None (occurrence: None)
  Receive Date: 20110805
  Receipt Date: 20110721
  Transmission Date: 20111222
  Serious: Yes (Hospitalization)
  Sender: FDA-Public Use
  Company Number: 2011MA009262

PATIENT
  Age: 63 Year
  Sex: Male

DRUGS (3)
  1. CLONAZEPAM [Suspect]
     Indication: SUPRANUCLEAR PALSY
  2. AMANTADINE HCL [Suspect]
     Indication: SUPRANUCLEAR PALSY
  3. BENZHEXOL (TRIHEXYPHENIDYL) [Suspect]
     Indication: SUPRANUCLEAR PALSY

REACTIONS (14)
  - CONFUSIONAL STATE [None]
  - BLOOD CREATININE INCREASED [None]
  - HYPERPYREXIA [None]
  - MUSCLE RIGIDITY [None]
  - REFUSAL OF TREATMENT BY PATIENT [None]
  - PARKINSONISM [None]
  - HYPERHIDROSIS [None]
  - BLOOD CREATINE PHOSPHOKINASE INCREASED [None]
  - COMA SCALE ABNORMAL [None]
  - DEHYDRATION [None]
  - TREMOR [None]
  - SINUS TACHYCARDIA [None]
  - BLOOD SODIUM INCREASED [None]
  - WHITE BLOOD CELL COUNT INCREASED [None]
